FAERS Safety Report 5914389-5 (Version None)
Quarter: 2008Q4

REPORT INFORMATION
  Report Type: 
  Country: None (occurrence: None)
  Receive Date: 20081007
  Receipt Date: 20080922
  Transmission Date: 20090506
  Serious: Yes (Other)
  Sender: FDA-Public Use
  Company Number: 2008S1017177

PATIENT
  Age: 65 Year
  Sex: Male
  Weight: 113.3993 kg

DRUGS (5)
  1. FENTANYL TRANSDERMAL SYSTEM [Suspect]
     Indication: BACK PAIN
     Dosage: 100 UG; EVERY HOUR; TRANSDERMAL
     Route: 062
     Dates: start: 20070901
  2. ASPIRIN [Concomitant]
  3. PLAVIX [Concomitant]
  4. NEXIUM [Concomitant]
  5. EXFORGE [Concomitant]

REACTIONS (4)
  - ANXIETY [None]
  - DEVICE FAILURE [None]
  - DRUG WITHDRAWAL SYNDROME [None]
  - HYPERHIDROSIS [None]
